FAERS Safety Report 25661334 (Version 1)
Quarter: 2025Q3

REPORT INFORMATION
  Report Type: Spontaneous
  Country: CA (occurrence: CA)
  Receive Date: 20250808
  Receipt Date: 20250808
  Transmission Date: 20251021
  Serious: Yes (Other)
  Sender: TEVA
  Company Number: CA-TEVA-VS-3361363

PATIENT
  Age: 74 Year
  Sex: Male

DRUGS (4)
  1. NAPROXEN [Suspect]
     Active Substance: NAPROXEN
     Indication: Product used for unknown indication
     Route: 048
  2. BISOPROLOL [Concomitant]
     Active Substance: BISOPROLOL
     Indication: Product used for unknown indication
     Route: 065
  3. IBUPROFEN [Suspect]
     Active Substance: IBUPROFEN
     Indication: Product used for unknown indication
     Route: 065
  4. ACETAMINOPHEN AND CODEINE [Concomitant]
     Active Substance: ACETAMINOPHEN\CODEINE PHOSPHATE
     Indication: Product used for unknown indication
     Route: 065

REACTIONS (10)
  - Gastrointestinal haemorrhage [Unknown]
  - Melaena [Unknown]
  - Duodenal ulcer [Unknown]
  - Presyncope [Unknown]
  - Cerebrovascular accident [Unknown]
  - Hypotension [Unknown]
  - Transfusion [Unknown]
  - Blood lactic acid increased [Unknown]
  - Haemorrhage [Unknown]
  - Haemoglobin abnormal [Unknown]
